FAERS Safety Report 5456710-0 (Version None)
Quarter: 2007Q3

REPORT INFORMATION
  Report Type: 
  Country: None (occurrence: None)
  Receive Date: 20070918
  Receipt Date: 20070531
  Transmission Date: 20080115
  Serious: No
  Sender: FDA-Public Use
  Company Number: US-ASTRAZENECA-2006UW25978

PATIENT
  Age: 18 Year
  Sex: Female
  Weight: 59.1 kg

DRUGS (4)
  1. SEROQUEL [Suspect]
     Indication: ANXIETY
     Dosage: 25-100 MG
     Route: 048
     Dates: start: 20020101, end: 20060101
  2. SEROQUEL [Suspect]
     Indication: DEPRESSION
     Dosage: 25-100 MG
     Route: 048
     Dates: start: 20020101, end: 20060101
  3. SEROQUEL [Suspect]
     Indication: BIPOLAR DISORDER
     Dosage: 25-100 MG
     Route: 048
     Dates: start: 20020101, end: 20060101
  4. KLONOPIN [Concomitant]
     Dates: start: 20030101, end: 20050101

REACTIONS (3)
  - HYPERGLYCAEMIA [None]
  - HYPERPROLACTINAEMIA [None]
  - HYPOGLYCAEMIA [None]
